FAERS Safety Report 7608456-8 (Version None)
Quarter: 2011Q3

REPORT INFORMATION
  Report Type: 
  Country: None (occurrence: None)
  Receive Date: 20110714
  Receipt Date: 20110621
  Transmission Date: 20111222
  Serious: Yes (Hospitalization)
  Sender: FDA-Public Use
  Company Number: US-AMGEN-KDC400360

PATIENT
  Age: 44 Year
  Sex: Female
  Weight: 91 kg

DRUGS (19)
  1. REGLAN [Concomitant]
     Dosage: 5 MG, TID
     Route: 048
  2. SENSIPAR [Concomitant]
     Dosage: 90 MG, QD
     Route: 048
  3. CINACALCET HYDROCHLORIDE [Suspect]
     Indication: HYPERPARATHYROIDISM SECONDARY
     Dosage: UNK UNK, QD
     Route: 048
     Dates: start: 20070822
  4. ACETAMINOPHEN [Concomitant]
     Dosage: 650 MG, PRN
     Route: 048
     Dates: start: 20100128
  5. LYRICA [Concomitant]
     Dosage: 100 MG, PRN
     Route: 048
  6. CALCIUM CARBONATE [Concomitant]
     Dosage: 650 MG, TID
     Route: 048
  7. LIPITOR [Concomitant]
     Dosage: 5 MG, QD
     Route: 048
  8. DARVOCET-N 50 [Concomitant]
     Dosage: UNK UNK, PRN
     Route: 048
  9. METOPROLOL [Concomitant]
     Dosage: 50 MG, BID
     Route: 048
  10. DIOVAN [Concomitant]
     Dosage: 160 MG, BID
     Route: 048
  11. LANTUS [Concomitant]
     Dosage: 60 IU, QD
     Route: 058
  12. PRILOSEC [Concomitant]
     Dosage: 20 MG, BID
     Route: 048
  13. HYDROXYZINE [Concomitant]
     Dosage: 50 MG, BID
     Route: 048
  14. MULTI-VITAMINS [Concomitant]
     Dosage: UNK UNK, QD
     Route: 048
  15. CLONIDINE [Concomitant]
     Dosage: .2 MG, QD
     Route: 048
  16. PRAVACHOL [Concomitant]
     Dosage: 80 MG, QD
     Route: 048
     Dates: start: 20100127
  17. GABAPENTIN [Concomitant]
     Dosage: 100 MG, TID
  18. PLACEBO [Suspect]
     Indication: HYPERPARATHYROIDISM SECONDARY
     Dosage: UNK UNK, QD
     Route: 048
     Dates: start: 20070822
  19. RENAGEL [Concomitant]
     Dosage: 800 MG, TID
     Route: 048

REACTIONS (2)
  - SEPSIS [None]
  - BRAIN STEM INFARCTION [None]
